FAERS Safety Report 5474731-9 (Version None)
Quarter: 2007Q3

REPORT INFORMATION
  Report Type: 
  Country: None (occurrence: None)
  Receive Date: 20070927
  Receipt Date: 20070927
  Transmission Date: 20080115
  Serious: Yes (Other)
  Sender: FDA-Public Use
  Company Number: None

PATIENT
  Sex: Male

DRUGS (1)
  1. ENBREL [Suspect]
     Indication: PSORIASIS
     Dosage: 1 INJ BIW SQ
     Route: 058
     Dates: start: 20070401, end: 20070901

REACTIONS (1)
  - GASTROINTESTINAL CARCINOMA [None]
